FAERS Safety Report 7716560-9 (Version None)
Quarter: 2011Q3

REPORT INFORMATION
  Report Type: 
  Country: None (occurrence: None)
  Receive Date: 20110829
  Receipt Date: 20110819
  Transmission Date: 20111222
  Serious: Yes (Other)
  Sender: FDA-Public Use
  Company Number: US-ASTRAZENECA-2011SE44822

PATIENT
  Age: 41 Year
  Sex: Female

DRUGS (9)
  1. SEROQUEL [Suspect]
     Route: 048
     Dates: start: 20050101
  2. SEROQUEL [Suspect]
     Route: 048
     Dates: start: 20100101
  3. DULOXETIME HYDROCHLORIDE [Concomitant]
     Route: 048
  4. LITHIUM CARBONATE [Concomitant]
     Route: 048
  5. SEROQUEL [Suspect]
     Indication: MAJOR DEPRESSION
     Route: 048
     Dates: end: 20100101
  6. SEROQUEL [Suspect]
     Route: 048
     Dates: start: 20050101
  7. CLONAZEPAM [Concomitant]
     Route: 048
  8. SEROQUEL [Suspect]
     Indication: PARANOIA
     Route: 048
     Dates: end: 20100101
  9. SEROQUEL [Suspect]
     Route: 048
     Dates: start: 20100101

REACTIONS (4)
  - HYPERPHAGIA [None]
  - HUNGER [None]
  - WEIGHT INCREASED [None]
  - HIRSUTISM [None]
